FAERS Safety Report 10184046 (Version 1)
Quarter: 2014Q2

REPORT INFORMATION
  Report Type: Spontaneous
  Country: CH (occurrence: CH)
  Receive Date: 20140520
  Receipt Date: 20140520
  Transmission Date: 20141212
  Serious: Yes (Hospitalization)
  Sender: FDA-Public Use
  Company Number: CH-GLAXOSMITHKLINE-B0994683A

PATIENT
  Age: 60 Year
  Sex: Male
  Weight: 90 kg

DRUGS (15)
  1. ZINACEF [Suspect]
     Indication: ANTIBIOTIC PROPHYLAXIS
     Dosage: 1.5G PER DAY
     Route: 042
     Dates: start: 20140114, end: 20140114
  2. NOVALGIN (INJECTION) [Suspect]
     Indication: PERIOPERATIVE ANALGESIA
     Dosage: 1G FOUR TIMES PER DAY
     Route: 040
     Dates: start: 20140111, end: 20140115
  3. KONAKION [Concomitant]
     Indication: CIRCULATING ANTICOAGULANT
     Dosage: 80MG PER DAY
     Route: 040
     Dates: start: 20140111, end: 20140114
  4. HEPARIN [Concomitant]
     Indication: ANTICOAGULANT THERAPY
     Dosage: 20000IU PER DAY
     Route: 042
     Dates: start: 20140112, end: 20140112
  5. DISOPRIVAN [Concomitant]
     Indication: ANAESTHESIA
     Dosage: 200MG PER DAY
     Route: 042
     Dates: start: 20140114, end: 20140114
  6. FENTANYL [Concomitant]
     Indication: PERIOPERATIVE ANALGESIA
     Dosage: 400MCG PER DAY
     Route: 042
     Dates: start: 20140114, end: 20140114
  7. MORPHINE [Concomitant]
     Indication: PERIOPERATIVE ANALGESIA
     Dosage: 1MG AS REQUIRED
     Route: 042
     Dates: start: 20140114, end: 20140114
  8. ESMERON [Concomitant]
     Indication: MUSCLE RELAXANT THERAPY
     Dosage: 60MG PER DAY
     Route: 042
     Dates: start: 20140114, end: 20140114
  9. EPHEDRIN [Concomitant]
     Indication: GENERAL ANAESTHESIA
     Dosage: 25MG PER DAY
     Route: 042
     Dates: start: 20140114, end: 20140114
  10. ROBINUL NEOSTIGMIN [Concomitant]
     Indication: MUSCLE RELAXANT THERAPY
     Dosage: .5MG PER DAY
     Route: 042
     Dates: start: 20140114, end: 20140114
  11. PERFALGAN [Concomitant]
     Indication: PERIOPERATIVE ANALGESIA
     Dosage: 1G FOUR TIMES PER DAY
     Route: 042
     Dates: start: 20140111, end: 20140115
  12. DAFALGAN [Concomitant]
     Indication: PERIOPERATIVE ANALGESIA
     Dosage: 1G FOUR TIMES PER DAY
     Dates: start: 20140114
  13. ZOFRAN [Concomitant]
     Indication: PROPHYLAXIS
     Dosage: 4MG AS REQUIRED
     Route: 042
     Dates: start: 20140114, end: 20140114
  14. CLEXANE [Concomitant]
     Indication: THROMBOSIS PROPHYLAXIS
     Dosage: 40MG PER DAY
     Route: 058
     Dates: start: 20140114, end: 20140115
  15. DIHYDROBENZPERIDOL [Concomitant]
     Indication: CONFUSION POSTOPERATIVE
     Dosage: .5MG AS REQUIRED
     Route: 042
     Dates: start: 20140114, end: 20140114

REACTIONS (1)
  - Acute generalised exanthematous pustulosis [Recovered/Resolved]
